FAERS Safety Report 5961850-3 (Version None)
Quarter: 2008Q4

REPORT INFORMATION
  Report Type: 
  Country: None (occurrence: None)
  Receive Date: 20081121
  Receipt Date: 20080204
  Transmission Date: 20090506
  Serious: No
  Sender: FDA-Public Use
  Company Number: US-BRISTOL-MYERS SQUIBB COMPANY-14118111

PATIENT
  Age: 36 Year
  Sex: Male

DRUGS (5)
  1. PRINIVIL [Suspect]
     Indication: HYPERTENSION
     Route: 048
     Dates: start: 20080101
  2. PRINZIDE [Suspect]
     Dosage: FORM = TABS. 1 DOSAGEFORM = 20-25 MG
     Route: 048
     Dates: start: 20080101, end: 20080101
  3. AVALIDE [Suspect]
     Dates: start: 20080101
  4. HYDRODIURIL [Concomitant]
  5. PREVACID [Concomitant]

REACTIONS (10)
  - BLOOD PRESSURE INADEQUATELY CONTROLLED [None]
  - CHEILITIS [None]
  - COUGH [None]
  - DRUG INEFFECTIVE [None]
  - MUCOSAL DRYNESS [None]
  - MUSCULOSKELETAL STIFFNESS [None]
  - OEDEMA PERIPHERAL [None]
  - PHARYNGEAL OEDEMA [None]
  - TONSILLITIS [None]
  - VISION BLURRED [None]
